FAERS Safety Report 5489270-9 (Version None)
Quarter: 2007Q4

REPORT INFORMATION
  Report Type: 
  Country: None (occurrence: None)
  Receive Date: 20071018
  Receipt Date: 20070625
  Transmission Date: 20080405
  Serious: Yes (Death, Other)
  Sender: FDA-Public Use
  Company Number: US-AVENTIS-200713023US

PATIENT
  Sex: Female
  Weight: 72.72 kg

DRUGS (11)
  1. LOVENOX [Suspect]
     Dosage: DOSE: UNK
     Dates: start: 20070401, end: 20070425
  2. INTEGRILIN [Suspect]
     Dosage: DOSE: 0.75/KG
  3. INTEGRILIN [Suspect]
     Route: 042
     Dates: start: 20070411
  4. INTEGRILIN [Suspect]
     Dosage: DOSE QUANTITY: 4.3; DOSE UNIT: MILLILITRE PER HOUR
     Route: 042
     Dates: start: 20070411
  5. INTEGRILIN [Suspect]
     Dosage: DOSE QUANTITY: 6.8; DOSE UNIT: MILLILITRE PER HOUR
     Route: 042
     Dates: start: 20070411
  6. AMIODARONE [Concomitant]
     Route: 042
     Dates: start: 20070411
  7. DOPAMINE DRIP [Concomitant]
     Dosage: DOSE QUANTITY: 2.5; DOSE UNIT: MICROGRAM PER KILOGRAM PER MINUTE
     Route: 042
     Dates: start: 20070411
  8. DOPAMINE DRIP [Concomitant]
     Dosage: DOSE QUANTITY: 5.0; DOSE UNIT: MICROGRAM PER KILOGRAM PER MINUTE
     Route: 042
     Dates: start: 20070411
  9. NITROGYLCERIN DRIP [Concomitant]
     Route: 042
     Dates: end: 20070411
  10. CARDENE [Concomitant]
     Dosage: FREQUENCY: AFTER MEALS
     Dates: start: 20070411
  11. CONTRAST MEDIA [Concomitant]

REACTIONS (3)
  - CARDIAC ARREST [None]
  - CATHETER THROMBOSIS [None]
  - CORONARY ARTERY THROMBOSIS [None]
